FAERS Safety Report 9157248 (Version 2)
Quarter: 2013Q1

REPORT INFORMATION
  Report Type: Report from Study
  Country: US (occurrence: US)
  Receive Date: 20130312
  Receipt Date: 20130325
  Transmission Date: 20140127
  Serious: Yes (Death, Hospitalization)
  Sender: FDA-Public Use
  Company Number: US-BRISTOL-MYERS SQUIBB COMPANY-14438824

PATIENT
  Age: 61 Year
  Sex: Male

DRUGS (1)
  1. IPILIMUMAB [Suspect]
     Indication: MALIGNANT MELANOMA
     Dosage: DOSAGE:991MG.?15OCT08-05NOV08
     Route: 042
     Dates: start: 20080919, end: 20081105

REACTIONS (4)
  - Sepsis [Fatal]
  - Pneumonia [Not Recovered/Not Resolved]
  - Cellulitis [Recovered/Resolved with Sequelae]
  - Diarrhoea [Recovered/Resolved with Sequelae]
